FAERS Safety Report 25540259 (Version 1)
Quarter: 2025Q3

REPORT INFORMATION
  Report Type: Spontaneous
  Country: RU (occurrence: RU)
  Receive Date: 20250710
  Receipt Date: 20250710
  Transmission Date: 20251021
  Serious: Yes (Other)
  Sender: PFIZER
  Company Number: RU-PFIZER INC-PV202500080894

PATIENT
  Age: 76 Year
  Sex: Female

DRUGS (4)
  1. PALBOCICLIB [Suspect]
     Active Substance: PALBOCICLIB
     Indication: Breast cancer
     Dosage: 125 MG, DAILY
     Route: 048
     Dates: start: 20201119
  2. PALBOCICLIB [Suspect]
     Active Substance: PALBOCICLIB
     Dates: start: 20230529
  3. PALBOCICLIB [Suspect]
     Active Substance: PALBOCICLIB
     Dosage: 75 MG, DAILY
     Dates: start: 20230701
  4. DENOSUMAB [Concomitant]
     Active Substance: DENOSUMAB

REACTIONS (2)
  - Neutropenia [Unknown]
  - Osteonecrosis of jaw [Unknown]
